FAERS Safety Report 5594103-6 (Version None)
Quarter: 2008Q1

REPORT INFORMATION
  Report Type: 
  Country: None (occurrence: None)
  Receive Date: 20080116
  Receipt Date: 20080104
  Transmission Date: 20080703
  Serious: Yes (Other)
  Sender: FDA-Public Use
  Company Number: US-PFIZER INC-2008002056

PATIENT
  Age: 39 Year
  Sex: Male

DRUGS (2)
  1. CHANTIX [Suspect]
     Indication: SMOKING CESSATION THERAPY
  2. ZOLOFT [Concomitant]

REACTIONS (3)
  - AGGRESSION [None]
  - AGITATION [None]
  - SUICIDAL IDEATION [None]
